FAERS Safety Report 8887289 (Version 1)
Quarter: 2012Q4

REPORT INFORMATION
  Report Type: 
  Country: US (occurrence: US)
  Receive Date: 20121101
  Receipt Date: 20121101
  Transmission Date: 20130627
  Serious: Yes (Other)
  Sender: FDA-Public Use
  Company Number: US-TEVA-367783USA

PATIENT
  Age: 46 Year
  Sex: Male

DRUGS (1)
  1. COPAXONE [Suspect]
     Indication: MULTIPLE SCLEROSIS

REACTIONS (2)
  - Oesophageal carcinoma [Recovered/Resolved]
  - Gastrooesophageal reflux disease [Recovered/Resolved]
